FAERS Safety Report 5383808-8 (Version None)
Quarter: 2007Q3

REPORT INFORMATION
  Report Type: 
  Country: None (occurrence: None)
  Receive Date: 20070702
  Receipt Date: 20070430
  Transmission Date: 20080115
  Serious: No
  Sender: FDA-Public Use
  Company Number: 2007PV032871

PATIENT
  Age: 49 Year
  Sex: Female

DRUGS (7)
  1. SYMLIN [Suspect]
     Indication: TYPE 2 DIABETES MELLITUS
     Dosage: 60 MCG; SC: 45 MCG; SC : 30 MCG; SC : 15 MCG; SC : SC
     Route: 058
     Dates: start: 20050101, end: 20050101
  2. SYMLIN [Suspect]
     Indication: TYPE 2 DIABETES MELLITUS
     Dosage: 60 MCG; SC: 45 MCG; SC : 30 MCG; SC : 15 MCG; SC : SC
     Route: 058
     Dates: start: 20070101, end: 20070101
  3. SYMLIN [Suspect]
     Indication: TYPE 2 DIABETES MELLITUS
     Dosage: 60 MCG; SC: 45 MCG; SC : 30 MCG; SC : 15 MCG; SC : SC
     Route: 058
     Dates: start: 20070101, end: 20070101
  4. SYMLIN [Suspect]
     Indication: TYPE 2 DIABETES MELLITUS
     Dosage: 60 MCG; SC: 45 MCG; SC : 30 MCG; SC : 15 MCG; SC : SC
     Route: 058
     Dates: start: 20070320, end: 20070101
  5. SYMLIN [Suspect]
     Indication: TYPE 2 DIABETES MELLITUS
     Dosage: 60 MCG; SC: 45 MCG; SC : 30 MCG; SC : 15 MCG; SC : SC
     Route: 058
     Dates: start: 20070101
  6. LANTUS [Concomitant]
  7. HUMALOG [Concomitant]

REACTIONS (3)
  - BLOOD GLUCOSE INCREASED [None]
  - NAUSEA [None]
  - WRONG DRUG ADMINISTERED [None]
